FAERS Safety Report 6004589-0 (Version None)
Quarter: 2008Q4

REPORT INFORMATION
  Report Type: 
  Country: None (occurrence: None)
  Receive Date: 20081216
  Receipt Date: 20080227
  Transmission Date: 20090506
  Serious: No
  Sender: FDA-Public Use
  Company Number: US-BRISTOL-MYERS SQUIBB COMPANY-14094130

PATIENT
  Age: 66 Year
  Sex: Female
  Weight: 102 kg

DRUGS (6)
  1. PRAVACHOL [Suspect]
     Dates: start: 20070101, end: 20080226
  2. COZAAR [Concomitant]
  3. NEXIUM [Concomitant]
  4. PROVENTIL [Concomitant]
  5. AMILORIDE HYDROCHLORIDE [Concomitant]
  6. NICOMIDE [Concomitant]

REACTIONS (1)
  - INSOMNIA [None]
